FAERS Safety Report 12606738 (Version 4)
Quarter: 2017Q3

REPORT INFORMATION
  Report Type: Report from Study
  Country: None (occurrence: CA)
  Receive Date: 20160729
  Receipt Date: 20170725
  Transmission Date: 20171127
  Serious: Yes (Other)
  Sender: FDA-Public Use
  Company Number: CA-ABBVIE-16K-028-1687086-00

PATIENT
  Age: 69 Year
  Sex: Male
  Weight: 85.8 kg

DRUGS (2)
  1. HUMIRA [Suspect]
     Active Substance: ADALIMUMAB
     Indication: COLITIS ULCERATIVE
  2. HUMIRA [Suspect]
     Active Substance: ADALIMUMAB
     Indication: CROHN^S DISEASE
     Route: 058
     Dates: start: 20100917

REACTIONS (9)
  - Rash pustular [Not Recovered/Not Resolved]
  - Colon adenoma [Unknown]
  - Inappropriate schedule of drug administration [Not Recovered/Not Resolved]
  - Intestinal polyp [Unknown]
  - Gastrointestinal tract adenoma [Unknown]
  - Aphthous ulcer [Not Recovered/Not Resolved]
  - Memory impairment [Not Recovered/Not Resolved]
  - Large intestine polyp [Recovered/Resolved]
  - General physical health deterioration [Not Recovered/Not Resolved]

NARRATIVE: CASE EVENT DATE: 201503
